FAERS Safety Report 4608193-8 (Version None)
Quarter: 2005Q2

REPORT INFORMATION
  Report Type: 
  Country: None (occurrence: None)
  Receive Date: 20050303
  Receipt Date: 20041104
  Transmission Date: 20051028
  Serious: No
  Sender: FDA-Public Use
  Company Number: 702329

PATIENT
  Age: 76 Year
  Sex: Male

DRUGS (11)
  1. AMEVIVE [Suspect]
     Indication: PSORIASIS
     Dosage: 15 MG; QW; IM;  QW;IM
     Route: 030
     Dates: start: 20040101, end: 20040101
  2. AMEVIVE [Suspect]
     Indication: PSORIASIS
     Dosage: 15 MG; QW; IM;  QW;IM
     Route: 030
     Dates: start: 20041010
  3. OLUX FOAM [Concomitant]
  4. VIOXX [Concomitant]
  5. ZETIA [Concomitant]
  6. MONOPRIL [Concomitant]
  7. ALLOPURINOL [Concomitant]
  8. DIAZEPAM [Concomitant]
  9. ATENOLOL [Concomitant]
  10. NIASPAN [Concomitant]
  11. PROTOPIC [Concomitant]

REACTIONS (1)
  - CD4 LYMPHOCYTES DECREASED [None]
